FAERS Safety Report 6709343-X (Version None)
Quarter: 2010Q2

REPORT INFORMATION
  Report Type: 
  Country: None (occurrence: None)
  Receive Date: 20100504
  Receipt Date: 20100423
  Transmission Date: 20101027
  Serious: Yes (Hospitalization)
  Sender: FDA-Public Use
  Company Number: AU-PFIZER INC-2010052524

PATIENT
  Age: 20 Year
  Sex: Male

DRUGS (3)
  1. CHAMPIX [Suspect]
     Dosage: UNK
     Route: 048
  2. ABILIFY [Concomitant]
     Dosage: UNK
  3. EFFEXOR [Concomitant]
     Dosage: UNK

REACTIONS (4)
  - AGGRESSION [None]
  - AGITATION [None]
  - INCOHERENT [None]
  - SUICIDAL IDEATION [None]
